FAERS Safety Report 9103163 (Version 3)
Quarter: 2013Q1

REPORT INFORMATION
  Report Type: Spontaneous
  Country: RU (occurrence: RU)
  Receive Date: 20130218
  Receipt Date: 20130320
  Transmission Date: 20140127
  Serious: Yes (Hospitalization, Other)
  Sender: FDA-Public Use
  Company Number: RU-ROCHE-1191256

PATIENT
  Sex: Male

DRUGS (1)
  1. AVASTIN [Suspect]
     Indication: RENAL CANCER
     Route: 065
     Dates: start: 2010

REACTIONS (2)
  - Cerebrovascular accident [Recovered/Resolved]
  - Dementia [Recovered/Resolved]
